FAERS Safety Report 6638355-X (Version None)
Quarter: 2010Q1

REPORT INFORMATION
  Report Type: 
  Country: None (occurrence: None)
  Receive Date: 20100317
  Receipt Date: 20100309
  Transmission Date: 20100710
  Serious: Yes (Other)
  Sender: FDA-Public Use
  Company Number: A0807697A

PATIENT
  Age: 58 Year
  Sex: Male
  Weight: 94.1 kg

DRUGS (2)
  1. AVANDIA [Suspect]
     Indication: TYPE 2 DIABETES MELLITUS
     Dosage: 8MG PER DAY
     Route: 048
     Dates: start: 20050101, end: 20070801
  2. AVANDAMET [Suspect]
     Indication: TYPE 2 DIABETES MELLITUS
     Route: 048

REACTIONS (11)
  - CEREBROVASCULAR ACCIDENT [None]
  - DIABETES MELLITUS INADEQUATE CONTROL [None]
  - DIABETIC VASCULAR DISORDER [None]
  - DRUG DOSE OMISSION [None]
  - FACIAL PALSY [None]
  - HYPOACUSIS [None]
  - MULTIPLE INJURIES [None]
  - OTITIS EXTERNA FUNGAL [None]
  - SINUSITIS [None]
  - TREATMENT NONCOMPLIANCE [None]
  - VITH NERVE PARALYSIS [None]
